FAERS Safety Report 11733302 (Version 1)
Quarter: 2015Q4

REPORT INFORMATION
  Report Type: Spontaneous
  Country: JP (occurrence: JP)
  Receive Date: 20151113
  Receipt Date: 20151113
  Transmission Date: 20160304
  Serious: Yes (Hospitalization, Congenital Anomaly, Other)
  Sender: FDA-Public Use
  Company Number: JP-BRISTOL-MYERS SQUIBB COMPANY-1999COU1400

PATIENT
  Sex: Male
  Weight: 2.51 kg

DRUGS (1)
  1. COUMADIN [Suspect]
     Active Substance: WARFARIN SODIUM
     Indication: PRODUCT USED FOR UNKNOWN INDICATION
     Dosage: 3 MG, QD
     Route: 064

REACTIONS (7)
  - Ventricular septal defect [Unknown]
  - Foetal warfarin syndrome [Unknown]
  - Psychomotor retardation [Unknown]
  - Cardiac failure [Unknown]
  - Foetal exposure during pregnancy [Unknown]
  - Congenital pulmonary hypertension [Unknown]
  - Congenital central nervous system anomaly [Unknown]
